FAERS Safety Report 5794672-7 (Version None)
Quarter: 2008Q2

REPORT INFORMATION
  Report Type: 
  Country: None (occurrence: None)
  Receive Date: 20080627
  Receipt Date: 20080627
  Transmission Date: 20081010
  Serious: Yes (Hospitalization)
  Sender: FDA-Public Use
  Company Number: None

PATIENT
  Sex: Female
  Weight: 53.5244 kg

DRUGS (13)
  1. DIGOXIN [Suspect]
     Dosage: 0.125MG PO QDAY  (THERAPY DATES: PRIOR TO ADMISSION)
     Route: 048
  2. DILTIAZEM HCL [Concomitant]
  3. NEXIUM [Concomitant]
  4. BAYER [Concomitant]
  5. LOVASTATIN [Concomitant]
  6. GLIPIZIDE [Concomitant]
  7. CENTRUM [Concomitant]
  8. POTASSIUM CHLORIDE [Concomitant]
  9. ACETAZOLAMIDE [Concomitant]
  10. HYZAAR [Concomitant]
  11. AMBIEN [Concomitant]
  12. XANAX [Concomitant]
  13. DITROPAN XL [Concomitant]

REACTIONS (4)
  - CHEST PAIN [None]
  - DYSPNOEA EXERTIONAL [None]
  - NAUSEA [None]
  - VOMITING [None]
